FAERS Safety Report 4557995-5 (Version None)
Quarter: 2005Q1

REPORT INFORMATION
  Report Type: 
  Country: None (occurrence: None)
  Receive Date: 20050121
  Receipt Date: 20040420
  Transmission Date: 20050727
  Serious: Yes (Other)
  Sender: FDA-Public Use
  Company Number: US-BRISTOL-MYERS SQUIBB COMPANY-12569372

PATIENT
  Age: 42 Year
  Sex: Male

DRUGS (6)
  1. SERZONE [Suspect]
     Indication: DEPRESSION
     Dosage: DOSE TITRATED TO 300 MG TWICE DAILY OVER 3 TO 4 MONTHS.
     Dates: start: 20011001, end: 20020201
  2. ZYPREXA [Concomitant]
     Indication: PSYCHOTIC DISORDER
     Dosage: DOSE TAKEN AT NIGHT.
  3. KLONOPIN [Concomitant]
  4. ZANAFLEX [Concomitant]
  5. CELEBREX [Concomitant]
  6. TRAZODONE HCL [Concomitant]
     Indication: SLEEP DISORDER

REACTIONS (6)
  - DYSPEPSIA [None]
  - HEADACHE [None]
  - HEPATITIS [None]
  - PANIC ATTACK [None]
  - SOMATISATION DISORDER [None]
  - VOMITING [None]
